FAERS Safety Report 25265090 (Version 2)
Quarter: 2025Q2

REPORT INFORMATION
  Report Type: Spontaneous
  Country: JP (occurrence: JP)
  Receive Date: 20250502
  Receipt Date: 20250527
  Transmission Date: 20250717
  Serious: Yes (Hospitalization, Other)
  Sender: KYOWA
  Company Number: JP-KYOWAKIRIN-2025KK002911

PATIENT

DRUGS (11)
  1. CRYSVITA [Suspect]
     Active Substance: BUROSUMAB-TWZA
     Indication: Hypophosphataemic osteomalacia
     Dosage: 90 MG, 1X/4 WEEKS
     Route: 058
     Dates: start: 20240917
  2. CRYSVITA [Suspect]
     Active Substance: BUROSUMAB-TWZA
     Route: 058
     Dates: start: 2020
  3. EVOCALCET [Suspect]
     Active Substance: EVOCALCET
     Indication: Hyperparathyroidism tertiary
     Route: 048
     Dates: start: 20250121
  4. EVOCALCET [Suspect]
     Active Substance: EVOCALCET
     Indication: Hypercalcaemia
  5. ALFACALCIDOL [Concomitant]
     Active Substance: ALFACALCIDOL
     Indication: Product used for unknown indication
     Route: 048
     Dates: start: 20211221, end: 20220118
  6. ONEALFA [Concomitant]
     Active Substance: ALFACALCIDOL
     Indication: Product used for unknown indication
     Route: 048
     Dates: start: 20220119
  7. ATORVASTATIN [Concomitant]
     Active Substance: ATORVASTATIN
     Indication: Dyslipidaemia
     Route: 048
     Dates: start: 20110317
  8. ESAXERENONE [Concomitant]
     Active Substance: ESAXERENONE
     Indication: Primary hyperaldosteronism
     Route: 048
     Dates: start: 20200605
  9. NEXIUM [Concomitant]
     Active Substance: ESOMEPRAZOLE MAGNESIUM
     Indication: Prophylaxis against gastrointestinal ulcer
     Route: 048
     Dates: start: 20201117
  10. AZELNIDIPINE [Concomitant]
     Active Substance: AZELNIDIPINE
     Indication: Hypertension
     Route: 048
     Dates: start: 20120224
  11. SODIUM PHOSPHATE, DIBASIC\SODIUM PHOSPHATE, MONOBASIC [Concomitant]
     Active Substance: SODIUM PHOSPHATE, DIBASIC\SODIUM PHOSPHATE, MONOBASIC
     Indication: Hypophosphataemia
     Route: 048
     Dates: start: 20200519

REACTIONS (8)
  - Cerebral infarction [Unknown]
  - Extradural neoplasm [Unknown]
  - Hypercalcaemia [Recovering/Resolving]
  - Blood parathyroid hormone increased [Not Recovered/Not Resolved]
  - Disease progression [Unknown]
  - Hyperparathyroidism tertiary [Unknown]
  - Off label use [Unknown]
  - Labelled drug-drug interaction medication error [Unknown]

NARRATIVE: CASE EVENT DATE: 20240917
